FAERS Safety Report 12826488 (Version 1)
Quarter: 2016Q4

REPORT INFORMATION
  Report Type: Spontaneous
  Country: US (occurrence: US)
  Receive Date: 20161007
  Receipt Date: 20161007
  Transmission Date: 20170207
  Serious: No
  Sender: FDA-Public Use
  Company Number: US-WATSON-2015-28784

PATIENT
  Age: 38 Year
  Sex: Female

DRUGS (1)
  1. FENTANYL-25 (WATSON LABORATORIES) [Suspect]
     Active Substance: FENTANYL
     Indication: PAIN
     Dosage: 25 MCG, Q1H
     Route: 062
     Dates: start: 201509

REACTIONS (3)
  - Application site erythema [Unknown]
  - Application site discomfort [Unknown]
  - Application site discharge [Unknown]

NARRATIVE: CASE EVENT DATE: 201509
